FAERS Safety Report 22602592 (Version 2)
Quarter: 2023Q2

REPORT INFORMATION
  Report Type: Report from Study
  Country: US (occurrence: None)
  Receive Date: 20230615
  Receipt Date: 20230621
  Transmission Date: 20230722
  Serious: Yes (Hospitalization)
  Sender: FDA-Public Use
  Company Number: US-ROCHE-3366413

PATIENT
  Age: 73 Year
  Sex: Female

DRUGS (2)
  1. TRASTUZUMAB [Suspect]
     Active Substance: TRASTUZUMAB
     Indication: Neoplasm malignant
     Dosage: TRASTUZUMAB: 8MG/KG IV OVER 90 MINUTES.?TRASTUZUMAB: 6MG/KG IV OVER 30 MINUTES ON DAY 1?LAST DOSE A
     Route: 041
     Dates: start: 20190514
  2. PERTUZUMAB [Suspect]
     Active Substance: PERTUZUMAB
     Indication: Neoplasm malignant
     Dosage: PERTUZUMAB: 840 MG IV OVER 60 MINUTES?PERTUZUMAB :420MG IV OVER 30-60 MINUTES?LAST DOSE ADMINISTERED
     Route: 042
     Dates: start: 20190514

REACTIONS (1)
  - Cerebrovascular accident [Unknown]

NARRATIVE: CASE EVENT DATE: 20230228
